FAERS Safety Report 22659493 (Version 2)
Quarter: 2024Q3

REPORT INFORMATION
  Report Type: Spontaneous
  Country: CH (occurrence: CH)
  Receive Date: 20230630
  Receipt Date: 20240830
  Transmission Date: 20241016
  Serious: Yes (Death, Life-Threatening, Hospitalization, Other)
  Sender: PFIZER
  Company Number: CH-MLMSERVICE-20230616-4354761-1

PATIENT
  Age: 60 Year
  Sex: Female
  Weight: 71 kg

DRUGS (20)
  1. INFLECTRA [Suspect]
     Active Substance: INFLIXIMAB-DYYB
     Indication: Colitis ulcerative
     Dosage: SINGLE DOSE 400MG ; IN TOTAL
     Route: 042
     Dates: start: 20211230, end: 20211230
  2. SOLU-MEDROL [Suspect]
     Active Substance: METHYLPREDNISOLONE SODIUM SUCCINATE
     Indication: Colitis ulcerative
     Dosage: 50 MG, EVERY 24 HOURS
     Route: 042
     Dates: start: 20211228, end: 20211231
  3. METHYLPREDNISOLONE SODIUM SUCCINATE [Suspect]
     Active Substance: METHYLPREDNISOLONE SODIUM SUCCINATE
     Indication: Colitis ulcerative
     Dosage: 50 MG, 1X/DAY
     Route: 042
  4. PREDNISOLONE [Suspect]
     Active Substance: PREDNISOLONE
     Indication: Colitis ulcerative
     Dosage: 60 MG, EVERY 24 HOURS
     Route: 048
     Dates: start: 20211224, end: 20211228
  5. BUDESONIDE [Suspect]
     Active Substance: BUDESONIDE
     Indication: Colitis ulcerative
     Dosage: 1 DF, 1X/DAY
     Route: 054
     Dates: start: 20211210, end: 20211224
  6. PREDNISONE [Suspect]
     Active Substance: PREDNISONE
     Indication: Colitis ulcerative
     Dosage: 60 MG, 1X/DAY
     Route: 048
  7. BUDESONIDE [Suspect]
     Active Substance: BUDESONIDE
     Indication: Colitis ulcerative
     Dosage: UNK
     Route: 054
  8. CIPROFLOXACIN [Concomitant]
     Active Substance: CIPROFLOXACIN
     Indication: Diarrhoea
     Dosage: 400 MG, 2X/DAY
     Route: 042
     Dates: start: 20211228, end: 20211230
  9. CIPROFLOXACIN [Concomitant]
     Active Substance: CIPROFLOXACIN
     Indication: Anti-infective therapy
     Dosage: UNK
  10. METRONIDAZOLE [Concomitant]
     Active Substance: METRONIDAZOLE
     Indication: Colitis ulcerative
     Dosage: 500 MG, EVERY 8 HOURS
     Route: 042
     Dates: start: 20211228, end: 20211230
  11. METRONIDAZOLE [Concomitant]
     Active Substance: METRONIDAZOLE
     Indication: Anti-infective therapy
  12. MESALAMINE [Concomitant]
     Active Substance: MESALAMINE
     Indication: Colitis ulcerative
     Dosage: UNK
     Route: 048
  13. MESALAMINE [Concomitant]
     Active Substance: MESALAMINE
     Dosage: UNK
     Route: 054
  14. PANTOPRAZOLE SODIUM [Concomitant]
     Active Substance: PANTOPRAZOLE SODIUM
     Dosage: 40 MG, 1X/DAY
     Route: 048
  15. MESALAMINE [Concomitant]
     Active Substance: MESALAMINE
     Indication: Colitis ulcerative
     Dosage: 1 G, EVERY 12 HOURS
     Route: 054
     Dates: start: 20211224, end: 20211228
  16. MESALAMINE [Concomitant]
     Active Substance: MESALAMINE
     Dosage: 3 G, EVERY 24 HOURS
     Route: 048
     Dates: start: 20211224, end: 20211230
  17. TIROSINT-SOL [Concomitant]
     Active Substance: LEVOTHYROXINE SODIUM
     Indication: Hypothyroidism
     Dosage: 25 UG, EVERY 24 HOURS, LONG-TERM MEDICATION
     Route: 048
  18. DAFALGAN [Concomitant]
     Active Substance: ACETAMINOPHEN
     Dosage: 1000 MG, EVERY 6 HOURS
     Route: 048
     Dates: start: 20211226, end: 20211230
  19. FRAGMIN [Concomitant]
     Active Substance: DALTEPARIN SODIUM
     Indication: Thrombosis prophylaxis
     Dosage: 5000 IU, EVERY 24 HOURS
     Route: 058
     Dates: start: 20211226, end: 20211231
  20. PIPERACILLIN SODIUM\TAZOBACTAM SODIUM [Concomitant]
     Active Substance: PIPERACILLIN SODIUM\TAZOBACTAM SODIUM
     Indication: Peritonitis
     Dosage: 4.5 G, EVERY 8 HOURS
     Route: 042
     Dates: start: 20211230

REACTIONS (12)
  - Multiple organ dysfunction syndrome [Fatal]
  - Hepatic failure [Fatal]
  - Herpes simplex colitis [Fatal]
  - Herpes simplex hepatitis [Fatal]
  - Peritonitis [Unknown]
  - Proctitis herpes [Unknown]
  - Large intestine perforation [Unknown]
  - Hepatic encephalopathy [Unknown]
  - Hepatic necrosis [Unknown]
  - Necrotising colitis [Unknown]
  - Condition aggravated [Unknown]
  - Genital herpes simplex [Unknown]

NARRATIVE: CASE EVENT DATE: 20211201
